FAERS Safety Report 6461865-5 (Version None)
Quarter: 2009Q4

REPORT INFORMATION
  Report Type: 
  Country: None (occurrence: None)
  Receive Date: 20091130
  Receipt Date: 20091116
  Transmission Date: 20100525
  Serious: Yes (Congenital Anomaly, Other)
  Sender: FDA-Public Use
  Company Number: GB-CELGENEUS-167-20484-09111634

PATIENT
  Sex: Male
  Weight: 3.12 kg

DRUGS (13)
  1. INNOHEP [Suspect]
     Route: 064
     Dates: start: 20040205, end: 20040308
  2. FERROUS SULFATE TAB [Concomitant]
     Route: 064
  3. LACTULOSE [Concomitant]
     Route: 064
  4. CO-DYDRAMOL [Concomitant]
     Route: 064
  5. GAVISCON [Concomitant]
     Route: 064
  6. TEMAZEPAM [Concomitant]
     Route: 064
  7. MEPERIDINE HCL [Concomitant]
     Route: 064
  8. VOLTAREN [Concomitant]
     Route: 064
  9. DEXAMETHASONE TAB [Concomitant]
     Route: 064
  10. CIMETIDINE [Concomitant]
     Route: 064
  11. SODIUM CITRATE [Concomitant]
     Route: 064
  12. MARCAINE [Concomitant]
     Route: 064
  13. MORPHINE [Concomitant]
     Route: 064

REACTIONS (2)
  - CRYPTORCHISM [None]
  - DRUG EXPOSURE DURING PREGNANCY [None]
